FAERS Safety Report 19060717 (Version 1)
Quarter: 2021Q1

REPORT INFORMATION
  Report Type: Spontaneous
  Country: US (occurrence: US)
  Receive Date: 20210325
  Receipt Date: 20210325
  Transmission Date: 20210420
  Serious: Yes (Hospitalization)
  Sender: FDA-Public Use
  Company Number: US-GLAXOSMITHKLINE-US2021AMR067273

PATIENT
  Sex: Female

DRUGS (1)
  1. ZEJULA [Suspect]
     Active Substance: NIRAPARIB
     Indication: OVARIAN CANCER
     Dosage: 200 MG, QD
     Dates: start: 20180512

REACTIONS (6)
  - Post procedural complication [Unknown]
  - Biliary stent placement [Unknown]
  - Biliary catheter insertion [Unknown]
  - Post procedural bile leak [Unknown]
  - Platelet disorder [Unknown]
  - Gallbladder operation [Unknown]
